FAERS Safety Report 5336134-7 (Version None)
Quarter: 2007Q1

REPORT INFORMATION
  Report Type: 
  Country: None (occurrence: None)
  Receive Date: 20070302
  Receipt Date: 20070117
  Transmission Date: 20070707
  Serious: No
  Sender: FDA-Public Use
  Company Number: PHEH2007US00750

PATIENT
  Age: 74 Year
  Sex: Male

DRUGS (4)
  1. ENABLEX [Suspect]
     Indication: HYPERTONIC BLADDER
     Dosage: 7.5 MG, QD, UNK
     Dates: start: 20070104
  2. DIAMOX /CAN/ (ACETAZOLAMIDE) [Concomitant]
  3. TIMOPTIC [Concomitant]
  4. DIOVAN [Concomitant]

REACTIONS (2)
  - CONSTIPATION [None]
  - HEART RATE INCREASED [None]
